FAERS Safety Report 17966113 (Version 1)
Quarter: 2020Q3

REPORT INFORMATION
  Report Type: Spontaneous
  Country: CN (occurrence: CN)
  Receive Date: 20200701
  Receipt Date: 20200701
  Transmission Date: 20201103
  Serious: Yes (Other)
  Sender: FDA-Public Use
  Company Number: CN-ROCHE-2632395

PATIENT
  Age: 43 Year
  Sex: Male
  Weight: 56 kg

DRUGS (6)
  1. OXALIPLATIN. [Concomitant]
     Active Substance: OXALIPLATIN
     Route: 065
     Dates: start: 20200523
  2. OXALIPLATIN. [Concomitant]
     Active Substance: OXALIPLATIN
     Route: 065
     Dates: start: 20200617
  3. XELODA [Suspect]
     Active Substance: CAPECITABINE
     Indication: COLON CANCER
     Route: 065
     Dates: start: 20200430
  4. OXALIPLATIN. [Concomitant]
     Active Substance: OXALIPLATIN
     Indication: COLON CANCER
     Route: 065
     Dates: start: 20200430
  5. XELODA [Suspect]
     Active Substance: CAPECITABINE
     Route: 065
     Dates: start: 20200523
  6. XELODA [Suspect]
     Active Substance: CAPECITABINE
     Route: 065
     Dates: start: 20200617

REACTIONS (3)
  - Neoplasm [Unknown]
  - Myelosuppression [Unknown]
  - Biliary dilatation [Unknown]
